FAERS Safety Report 6699998-0 (Version None)
Quarter: 2010Q2

REPORT INFORMATION
  Report Type: 
  Country: None (occurrence: None)
  Receive Date: 20100428
  Receipt Date: 20100423
  Transmission Date: 20101027
  Serious: Yes (Death)
  Sender: FDA-Public Use
  Company Number: PHEH2010US00524

PATIENT
  Sex: Female

DRUGS (1)
  1. EXJADE [Suspect]
     Indication: BREAST CANCER
     Dosage: 1000 MG DAILY
     Route: 048
     Dates: start: 20090821

REACTIONS (1)
  - MALIGNANT NEOPLASM PROGRESSION [None]
